FAERS Safety Report 6689955-2 (Version None)
Quarter: 2010Q2

REPORT INFORMATION
  Report Type: 
  Country: None (occurrence: None)
  Receive Date: 20100421
  Receipt Date: 20100413
  Transmission Date: 20101027
  Serious: Yes (Death)
  Sender: FDA-Public Use
  Company Number: IT-PFIZER INC-2010022678

PATIENT
  Age: 51 Year
  Sex: Female

DRUGS (5)
  1. FARMORUBICINA [Suspect]
     Indication: BREAST CANCER
     Dosage: 48.1 MG, CYCLIC
     Route: 042
     Dates: start: 20091119, end: 20100121
  2. DEXAMETHASONE [Suspect]
     Indication: PAIN
     Dosage: 8 MG, CYCLIC
     Route: 042
     Dates: start: 20091119, end: 20100121
  3. SOLDESAM [Concomitant]
     Indication: METASTATIC PAIN
     Dosage: 96 DROPS
     Route: 048
     Dates: start: 20091117, end: 20100121
  4. DICLOFENAC SODIUM/MISOPROSTOL [Concomitant]
     Indication: METASTATIC PAIN
     Dosage: 150 MG, UNK
     Route: 048
     Dates: start: 20091117, end: 20100121
  5. AREDIA [Concomitant]
     Indication: METASTASES TO BONE
     Dosage: 90 MG, X/DAY
     Route: 042
     Dates: start: 20100114, end: 20100114

REACTIONS (1)
  - RESPIRATORY FAILURE [None]
